FAERS Safety Report 5110749-3 (Version None)
Quarter: 2006Q3

REPORT INFORMATION
  Report Type: 
  Country: None (occurrence: None)
  Receive Date: 20060731
  Receipt Date: 20060612
  Transmission Date: 20061208
  Serious: No
  Sender: FDA-Public Use
  Company Number: 2006PV015477

PATIENT
  Age: 63 Year
  Sex: Female
  Weight: 116.8012 kg

DRUGS (3)
  1. BYETTA [Suspect]
     Indication: DIABETES MELLITUS NON-INSULIN-DEPENDENT
     Dosage: 5 MCG ; BID; SC
     Dates: start: 20060610
  2. LOTENSIN [Concomitant]
  3. WATER PILL [Concomitant]

REACTIONS (3)
  - DRUG EFFECT DECREASED [None]
  - INJECTION SITE PAIN [None]
  - WEIGHT DECREASED [None]
